FAERS Safety Report 18972619 (Version 6)
Quarter: 2021Q2

REPORT INFORMATION
  Report Type: Spontaneous
  Country: US (occurrence: US)
  Receive Date: 20210305
  Receipt Date: 20210426
  Transmission Date: 20210717
  Serious: No
  Sender: FDA-Public Use
  Company Number: US-LUPIN PHARMACEUTICALS INC.-2021-02596

PATIENT
  Sex: Male

DRUGS (1)
  1. LISINOPRIL TABLETS [Suspect]
     Active Substance: LISINOPRIL
     Indication: HYPERTENSION
     Dosage: UNK
     Route: 065
     Dates: start: 20210121

REACTIONS (5)
  - Blood pressure increased [Unknown]
  - Headache [Unknown]
  - Blood pressure inadequately controlled [Unknown]
  - Blood pressure fluctuation [Unknown]
  - Feeling abnormal [Unknown]
